FAERS Safety Report 8201085-7 (Version None)
Quarter: 2012Q1

REPORT INFORMATION
  Report Type: 
  Country: None (occurrence: None)
  Receive Date: 20120312
  Receipt Date: 20120301
  Transmission Date: 20120608
  Serious: Yes (Other)
  Sender: FDA-Public Use
  Company Number: DE-SANOFI-AVENTIS-2012SA014886

PATIENT
  Sex: Male
  Weight: 73 kg

DRUGS (2)
  1. BICALUTAMIDE [Concomitant]
     Indication: PROSTATE CANCER
  2. LEUPROLIDE ACETATE [Suspect]
     Route: 065
     Dates: start: 20110222, end: 20110725

REACTIONS (1)
  - GASTRIC CANCER [None]
